FAERS Safety Report 13001513 (Version 1)
Quarter: 2016Q4

REPORT INFORMATION
  Report Type: Spontaneous
  Country: US (occurrence: US)
  Receive Date: 20161205
  Receipt Date: 20161205
  Transmission Date: 20170207
  Serious: Yes (Hospitalization)
  Sender: FDA-Public Use
  Company Number: None

PATIENT
  Sex: Female
  Weight: 67.1 kg

DRUGS (15)
  1. ALLORIL [Concomitant]
  2. RIBAVIRIN GILEAD SCIENCES [Suspect]
     Active Substance: RIBAVIRIN
     Indication: HEPATITIS C VIRUS TEST
     Route: 048
     Dates: start: 20160503, end: 20160511
  3. BONDORMIN [Concomitant]
     Active Substance: BROTIZOLAM
  4. CLEXANE [Concomitant]
     Active Substance: ENOXAPARIN SODIUM
  5. COUMADIN [Concomitant]
     Active Substance: WARFARIN SODIUM
  6. VIEKIRA PAK [Suspect]
     Active Substance: DASABUVIR\OMBITASVIR\PARITAPREVIR\RITONAVIR
     Indication: HEPATITIS C VIRUS TEST
     Dosage: 1 PILL + 2 PILLS  EVERY DAY , BID + QD
     Dates: start: 20160503, end: 20160512
  7. AVILAC [Concomitant]
  8. DAYPK-MERZ [Concomitant]
  9. VITAMIN D3 [Concomitant]
     Active Substance: CHOLECALCIFEROL
  10. CONTROLOC [Concomitant]
     Active Substance: PANTOPRAZOLE SODIUM
  11. PROGRAF [Concomitant]
     Active Substance: TACROLIMUS\TACROLIMUS ANHYDROUS
  12. JANUVIA [Concomitant]
     Active Substance: SITAGLIPTIN PHOSPHATE
  13. TRITACE [Concomitant]
     Active Substance: RAMIPRIL
  14. FUSID [Concomitant]
     Active Substance: FUROSEMIDE
  15. MAGNOX [Concomitant]

REACTIONS (17)
  - Acute kidney injury [None]
  - Pneumonia [None]
  - Vomiting [None]
  - Pancytopenia [None]
  - Hyponatraemia [None]
  - Abdominal pain [None]
  - Duodenal ulcer [None]
  - Tricuspid valve incompetence [None]
  - Headache [None]
  - Hyperkalaemia [None]
  - Cardiac failure congestive [None]
  - Upper gastrointestinal haemorrhage [None]
  - Tachycardia [None]
  - Pruritus [None]
  - Vision blurred [None]
  - Joint dislocation [None]
  - Diabetes mellitus [None]

NARRATIVE: CASE EVENT DATE: 20160516
